FAERS Safety Report 17534218 (Version 1)
Quarter: 2020Q1

REPORT INFORMATION
  Report Type: Spontaneous
  Country: US (occurrence: US)
  Receive Date: 20200312
  Receipt Date: 20200312
  Transmission Date: 20200409
  Serious: No
  Sender: FDA-Public Use
  Company Number: US-JNJFOC-20200307170

PATIENT
  Age: 74 Year
  Sex: Male
  Weight: 81.72 kg

DRUGS (4)
  1. XARELTO [Suspect]
     Active Substance: RIVAROXABAN
     Indication: DEEP VEIN THROMBOSIS
     Route: 048
     Dates: start: 201901, end: 2019
  2. XARELTO [Suspect]
     Active Substance: RIVAROXABAN
     Route: 048
     Dates: start: 2019
  3. XARELTO [Suspect]
     Active Substance: RIVAROXABAN
     Route: 048
     Dates: start: 202003
  4. XARELTO [Suspect]
     Active Substance: RIVAROXABAN
     Dosage: 5045858451?15 OR 20 MG
     Route: 048
     Dates: start: 201911

REACTIONS (3)
  - Wrong technique in product usage process [Unknown]
  - Peripheral swelling [Not Recovered/Not Resolved]
  - Protein C deficiency [Not Recovered/Not Resolved]

NARRATIVE: CASE EVENT DATE: 201907
